FAERS Safety Report 6315608-6 (Version None)
Quarter: 2009Q3

REPORT INFORMATION
  Report Type: 
  Country: None (occurrence: None)
  Receive Date: 20090818
  Receipt Date: 20090807
  Transmission Date: 20100115
  Serious: Yes (Death, Disabling)
  Sender: FDA-Public Use
  Company Number: 2009-199573-NL

PATIENT
  Age: 52 Year
  Sex: Male
  Weight: 115 kg

DRUGS (5)
  1. MUSCULAX (VECURONIUM BROMIDE) (VECURONIUM BROMIDE) [Suspect]
     Indication: MUSCLE RELAXANT THERAPY
     Dosage: 50 MG;QD;IV
     Route: 042
     Dates: start: 20080123, end: 20080125
  2. MEROPENEM TRIHYDRATE [Concomitant]
  3. ERYTHROMYCIN [Concomitant]
  4. LACTOBIONATE [Concomitant]
  5. PREDNISOLONE [Concomitant]

REACTIONS (12)
  - ANTIBODY TEST POSITIVE [None]
  - BACTERIA SPUTUM IDENTIFIED [None]
  - BLOOD PRESSURE INCREASED [None]
  - CARDIO-RESPIRATORY ARREST [None]
  - DEHYDRATION [None]
  - DIALYSIS [None]
  - OXYGEN SATURATION DECREASED [None]
  - PNEUMOCOCCAL INFECTION [None]
  - PULMONARY EMBOLISM [None]
  - RENAL FAILURE [None]
  - RHABDOMYOLYSIS [None]
  - SHOCK [None]
